FAERS Safety Report 10048183 (Version 1)
Quarter: 2014Q1

REPORT INFORMATION
  Report Type: Spontaneous
  Country: US (occurrence: US)
  Receive Date: 20140331
  Receipt Date: 20140331
  Transmission Date: 20141002
  Serious: No
  Sender: FDA-Public Use
  Company Number: US-PFIZER INC-2014088868

PATIENT
  Sex: Male

DRUGS (4)
  1. GABAPENTIN [Suspect]
     Indication: PAIN IN EXTREMITY
     Dosage: 100 MG, UNK
     Dates: start: 201403
  2. HYDROCODONE [Concomitant]
     Indication: PAIN
     Dosage: UNK
  3. CEPHALEXIN [Concomitant]
     Dosage: UNK
  4. MEDROL [Concomitant]
     Dosage: UNK

REACTIONS (2)
  - Feeling abnormal [Unknown]
  - Somnolence [Unknown]
